FAERS Safety Report 7272432-8 (Version None)
Quarter: 2011Q1

REPORT INFORMATION
  Report Type: 
  Country: None (occurrence: None)
  Receive Date: 20110203
  Receipt Date: 20101229
  Transmission Date: 20110831
  Serious: Yes (Hospitalization)
  Sender: FDA-Public Use
  Company Number: US-BAYER-201017034NA

PATIENT
  Sex: Female
  Weight: 59 kg

DRUGS (4)
  1. YASMIN [Suspect]
     Indication: HORMONE LEVEL ABNORMAL
     Dosage: UNK
     Route: 048
     Dates: start: 20090101, end: 20091001
  2. YAZ [Suspect]
     Indication: CONTRACEPTION
  3. YAZ [Suspect]
     Indication: HORMONE LEVEL ABNORMAL
     Dosage: UNK
     Route: 048
     Dates: start: 20081023, end: 20091001
  4. CIPRO [Concomitant]
     Indication: URINARY TRACT INFECTION

REACTIONS (14)
  - DYSPNOEA [None]
  - COUGH [None]
  - ASTHENIA [None]
  - LOSS OF CONSCIOUSNESS [None]
  - SYNCOPE [None]
  - PULMONARY EMBOLISM [None]
  - PAIN IN EXTREMITY [None]
  - DYSPNOEA EXERTIONAL [None]
  - HYPERVENTILATION [None]
  - HEART RATE DECREASED [None]
  - CHEST PAIN [None]
  - DIZZINESS [None]
  - TACHYPNOEA [None]
  - PULMONARY THROMBOSIS [None]
